FAERS Safety Report 11504392 (Version 2)
Quarter: 2015Q3

REPORT INFORMATION
  Report Type: Spontaneous
  Country: US (occurrence: US)
  Receive Date: 20150915
  Receipt Date: 20150916
  Transmission Date: 20151125
  Serious: Yes (Life-Threatening, Hospitalization, Other)
  Sender: FDA-Public Use
  Company Number: US-JNJFOC-20150901393

PATIENT

DRUGS (3)
  1. ACETAMINOPHEN. [Suspect]
     Active Substance: ACETAMINOPHEN
     Indication: PRODUCT USED FOR UNKNOWN INDICATION
     Route: 065
  2. NARCOTIC ANALGESICS, NOS [Suspect]
     Active Substance: UNSPECIFIED INGREDIENT
     Indication: PRODUCT USED FOR UNKNOWN INDICATION
     Route: 065
  3. ACETAMINOPHEN. [Suspect]
     Active Substance: ACETAMINOPHEN
     Route: 065

REACTIONS (14)
  - Ventricular arrhythmia [Unknown]
  - Depressed level of consciousness [Unknown]
  - Cardiac arrest [Unknown]
  - Vomiting [Unknown]
  - Drug abuse [Unknown]
  - Tachycardia [Unknown]
  - Hypertension [Unknown]
  - Hyperthermia [Unknown]
  - Intentional product misuse [Unknown]
  - Hypotension [Unknown]
  - Seizure [Unknown]
  - Self injurious behaviour [Unknown]
  - Accidental exposure to product [Unknown]
  - Agitation [Unknown]
